FAERS Safety Report 6087999-5 (Version None)
Quarter: 2009Q1

REPORT INFORMATION
  Report Type: 
  Country: None (occurrence: None)
  Receive Date: 20090219
  Receipt Date: 20090203
  Transmission Date: 20090719
  Serious: Yes (Death)
  Sender: FDA-Public Use
  Company Number: AE2009-011

PATIENT
  Age: 43 Year
  Sex: Female

DRUGS (6)
  1. FAZACLO ODT [Suspect]
     Indication: SCHIZOPHRENIA
     Dosage: 100MG QAM, 350MG QHS; PO
     Route: 048
     Dates: start: 20080301, end: 20081227
  2. DILANTIN [Concomitant]
  3. TRAZODONE HCL [Concomitant]
  4. TRILEPTAL [Concomitant]
  5. METFORMIN HCL [Concomitant]
  6. ALBUTEROL [Concomitant]

REACTIONS (6)
  - ANEURYSM [None]
  - ASTHMA [None]
  - CHRONIC OBSTRUCTIVE PULMONARY DISEASE [None]
  - CONDITION AGGRAVATED [None]
  - MYOCARDIAL INFARCTION [None]
  - PNEUMONIA [None]
